FAERS Safety Report 7367441-4 (Version None)
Quarter: 2011Q1

REPORT INFORMATION
  Report Type: 
  Country: None (occurrence: None)
  Receive Date: 20110322
  Receipt Date: 20110318
  Transmission Date: 20110831
  Serious: Yes (Other)
  Sender: FDA-Public Use
  Company Number: US-PFIZER INC-2010128182

PATIENT
  Sex: Female
  Weight: 79 kg

DRUGS (9)
  1. TERBUTALINE [Concomitant]
     Dosage: UNK
  2. THEOPHYLLINE [Concomitant]
     Dosage: UNK
  3. VALSARTAN [Concomitant]
     Dosage: UNK
  4. CHANTIX [Suspect]
     Indication: SMOKING CESSATION THERAPY
     Dosage: 0.5 MG, 1X/DAY
     Route: 048
     Dates: start: 20101004, end: 20101001
  5. ACCOLATE [Concomitant]
     Dosage: UNK
  6. CLINDAMYCIN [Concomitant]
     Dosage: UNK
  7. CHANTIX [Suspect]
     Dosage: 0.5 MG, 2X/DAY
     Route: 048
     Dates: start: 20101001
  8. SPIRIVA [Concomitant]
     Dosage: UNK
  9. FORADIL [Concomitant]
     Dosage: UNK

REACTIONS (2)
  - NERVOUSNESS [None]
  - WITHDRAWAL SYNDROME [None]
